FAERS Safety Report 21330981 (Version 2)
Quarter: 2022Q3

REPORT INFORMATION
  Report Type: Spontaneous
  Country: GB (occurrence: GB)
  Receive Date: 20220914
  Receipt Date: 20220923
  Transmission Date: 20221027
  Serious: Yes (Other)
  Sender: FDA-Public Use
  Company Number: GB-MLMSERVICE-20220826-3761017-1

PATIENT
  Age: 40 Year
  Sex: Female

DRUGS (4)
  1. BUPIVACAINE HYDROCHLORIDE [Interacting]
     Active Substance: BUPIVACAINE HYDROCHLORIDE
     Indication: Spinal anaesthesia
     Dosage: 13 MILLIGRAM (HYPERBARIC)
     Route: 065
  2. FENTANYL [Interacting]
     Active Substance: FENTANYL
     Indication: Spinal anaesthesia
     Dosage: 15 MICROGRAM
     Route: 065
  3. MORPHINE [Interacting]
     Active Substance: MORPHINE
     Indication: Spinal anaesthesia
     Dosage: 100 MICROGRAM (PRESERVATIVE-FREE)
     Route: 065
  4. MIDAZOLAM [Suspect]
     Active Substance: MIDAZOLAM
     Indication: Spinal anaesthesia
     Dosage: 2 MILLIGRAM
     Route: 065

REACTIONS (3)
  - Drug interaction [Recovered/Resolved]
  - Myoclonus [Recovered/Resolved]
  - Exposure during pregnancy [Unknown]
